FAERS Safety Report 5065709-8 (Version None)
Quarter: 2006Q3

REPORT INFORMATION
  Report Type: 
  Country: None (occurrence: None)
  Receive Date: 20060731
  Receipt Date: 20060720
  Transmission Date: 20061208
  Serious: Yes (Other)
  Sender: FDA-Public Use
  Company Number: US-JNJFOC-20060703635

PATIENT
  Age: 52 Year
  Sex: Female

DRUGS (2)
  1. LEVAQUIN [Suspect]
     Indication: SINUSITIS
     Route: 065
     Dates: start: 20010510
  2. PREDNISONE [Suspect]
     Indication: SINUSITIS
     Route: 065

REACTIONS (11)
  - ANGIONEUROTIC OEDEMA [None]
  - ARTHRALGIA [None]
  - CONNECTIVE TISSUE DISORDER [None]
  - DYSPNOEA [None]
  - FACIAL PAIN [None]
  - MYALGIA [None]
  - NERVOUS SYSTEM DISORDER [None]
  - PERIPHERAL NERVE INJURY [None]
  - POLYNEUROPATHY [None]
  - TENDONITIS [None]
  - VASODILATATION [None]
